FAERS Safety Report 18874278 (Version 1)
Quarter: 2021Q1

REPORT INFORMATION
  Report Type: Spontaneous
  Country: US (occurrence: US)
  Receive Date: 20210210
  Receipt Date: 20210210
  Transmission Date: 20210420
  Serious: Yes (Other)
  Sender: FDA-Public Use
  Company Number: US-SA-2021SA035323

PATIENT
  Age: 47 Year
  Sex: Female

DRUGS (3)
  1. ZANTAC [Suspect]
     Active Substance: RANITIDINE HYDROCHLORIDE
     Indication: DYSPEPSIA
     Dosage: 25 MGQD
     Dates: start: 199701
  2. ZANTAC [Suspect]
     Active Substance: RANITIDINE HYDROCHLORIDE
     Dosage: 150 MG, QD
     Dates: end: 201902
  3. ZANTAC [Suspect]
     Active Substance: RANITIDINE HYDROCHLORIDE
     Dosage: 75 MG, QD

REACTIONS (6)
  - Colorectal cancer stage IV [Recovering/Resolving]
  - Gastrointestinal carcinoma [Recovering/Resolving]
  - Renal cancer stage IV [Recovering/Resolving]
  - Small intestine carcinoma stage IV [Recovering/Resolving]
  - Pancreatic carcinoma stage IV [Recovering/Resolving]
  - Gastric cancer stage IV [Recovering/Resolving]

NARRATIVE: CASE EVENT DATE: 20181001
